FAERS Safety Report 14149393 (Version 2)
Quarter: 2017Q4

REPORT INFORMATION
  Report Type: Spontaneous
  Country: US (occurrence: US)
  Receive Date: 20171101
  Receipt Date: 20171213
  Transmission Date: 20180321
  Serious: No
  Sender: FDA-Public Use
  Company Number: US-PFIZER INC-2017290734

PATIENT
  Age: 13 Year
  Sex: Male
  Weight: 54 kg

DRUGS (3)
  1. GENOTROPIN [Suspect]
     Active Substance: SOMATROPIN
     Indication: DWARFISM
     Dosage: 1.5 MG, UNK
     Dates: start: 2017
  2. GENOTROPIN [Suspect]
     Active Substance: SOMATROPIN
     Dosage: 2 MG, 1X/DAY
  3. GENOTROPIN [Suspect]
     Active Substance: SOMATROPIN
     Dosage: 2.3 MG, DAILY
     Dates: start: 201703

REACTIONS (6)
  - Gastroenteritis viral [Unknown]
  - Malaise [Unknown]
  - Vomiting [Unknown]
  - Incorrect dose administered [Unknown]
  - Abdominal discomfort [Unknown]
  - Drug prescribing error [Unknown]

NARRATIVE: CASE EVENT DATE: 20171025
